FAERS Safety Report 15473253 (Version 1)
Quarter: 2018Q4

REPORT INFORMATION
  Report Type: Report from Study
  Country: US (occurrence: US)
  Receive Date: 20181008
  Receipt Date: 20181008
  Transmission Date: 20190205
  Serious: Yes (Other)
  Sender: FDA-Public Use
  Company Number: US-IPSEN BIOPHARMACEUTICALS, INC.-2018-12058

PATIENT
  Sex: Female

DRUGS (7)
  1. NUTROPIN AQ [Suspect]
     Active Substance: SOMATROPIN
     Route: 058
  2. NUTROPIN AQ [Suspect]
     Active Substance: SOMATROPIN
     Route: 058
  3. NUTROPIN AQ [Suspect]
     Active Substance: SOMATROPIN
     Route: 058
  4. NUTROPIN AQ [Suspect]
     Active Substance: SOMATROPIN
     Route: 058
  5. OMNICEF [Concomitant]
     Active Substance: CEFDINIR
  6. NUTROPIN AQ [Suspect]
     Active Substance: SOMATROPIN
     Indication: GROWTH HORMONE DEFICIENCY
     Route: 058
  7. NUTROPIN AQ [Suspect]
     Active Substance: SOMATROPIN
     Route: 058

REACTIONS (11)
  - Urinary tract infection [Unknown]
  - Nocturia [Unknown]
  - Constipation [Unknown]
  - Gait disturbance [Unknown]
  - Mean cell volume increased [Unknown]
  - Albumin globulin ratio increased [Unknown]
  - Blood alkaline phosphatase increased [Unknown]
  - Lordosis [Unknown]
  - Pain in extremity [Unknown]
  - Globulins decreased [Unknown]
  - Hip deformity [Unknown]
